FAERS Safety Report 21267953 (Version 1)
Quarter: 2022Q3

REPORT INFORMATION
  Report Type: Report from Study
  Country: CO (occurrence: CO)
  Receive Date: 20220829
  Receipt Date: 20220829
  Transmission Date: 20221027
  Serious: Yes (Other)
  Sender: FDA-Public Use
  Company Number: CO-ABBVIE-22K-036-4515178-00

PATIENT
  Sex: Female
  Weight: 54 kg

DRUGS (5)
  1. HUMIRA [Suspect]
     Active Substance: ADALIMUMAB
     Indication: Crohn^s disease
     Route: 058
     Dates: start: 20181113
  2. QUETIAPINE [Suspect]
     Active Substance: QUETIAPINE
     Indication: Depression
     Dosage: THE NIGHT SHOT
     Route: 048
     Dates: end: 2022
  3. QUETIAPINE [Suspect]
     Active Substance: QUETIAPINE
     Dosage: TAKING HALF TABLET
     Route: 048
     Dates: start: 202206
  4. SULFASALAZINE [Suspect]
     Active Substance: SULFASALAZINE
     Indication: Fibromyalgia
     Route: 048
     Dates: start: 2022
  5. ESCITALOPRAM [Concomitant]
     Active Substance: ESCITALOPRAM OXALATE
     Indication: Depression
     Route: 048

REACTIONS (13)
  - Gastrointestinal disorder [Recovering/Resolving]
  - Crohn^s disease [Recovering/Resolving]
  - Gait disturbance [Not Recovered/Not Resolved]
  - Food intolerance [Recovered/Resolved]
  - Osteoporosis [Unknown]
  - Somnolence [Unknown]
  - Illness [Unknown]
  - Fibromyalgia [Recovering/Resolving]
  - Discomfort [Not Recovered/Not Resolved]
  - Discomfort [Recovering/Resolving]
  - Bone pain [Recovering/Resolving]
  - Drug ineffective [Unknown]
  - Intentional product misuse [Unknown]

NARRATIVE: CASE EVENT DATE: 20190101
